FAERS Safety Report 20802192 (Version 1)
Quarter: 2022Q2

REPORT INFORMATION
  Report Type: Report from Study
  Country: US (occurrence: US)
  Receive Date: 20220509
  Receipt Date: 20220509
  Transmission Date: 20220721
  Serious: Yes (Hospitalization)
  Sender: FDA-Public Use
  Company Number: US-Accord-262868

PATIENT
  Sex: Female
  Weight: 99.34 kg

DRUGS (1)
  1. CLOZAPINE [Suspect]
     Active Substance: CLOZAPINE
     Indication: Product used for unknown indication
     Dosage: ON 50MG DAILY AND THEY WILL TITRATE UP
     Route: 048

REACTIONS (3)
  - Hallucination, auditory [Unknown]
  - Suicidal ideation [Unknown]
  - Treatment noncompliance [Unknown]
